FAERS Safety Report 25415897 (Version 1)
Quarter: 2025Q2

REPORT INFORMATION
  Report Type: Spontaneous
  Country: DE (occurrence: DE)
  Receive Date: 20250610
  Receipt Date: 20250610
  Transmission Date: 20250717
  Serious: Yes (Hospitalization, Other)
  Sender: CELLTRION
  Company Number: DE-SAMSUNG BIOEPIS-SB-2024-37896

PATIENT

DRUGS (1)
  1. INFLIXIMAB [Suspect]
     Active Substance: INFLIXIMAB
     Indication: Product used for unknown indication

REACTIONS (10)
  - Haemophagocytic lymphohistiocytosis [Unknown]
  - Pancytopenia [Unknown]
  - Hepatic enzyme abnormal [Unknown]
  - Serum ferritin increased [Unknown]
  - C-reactive protein increased [Unknown]
  - Epstein-Barr virus antibody positive [Unknown]
  - Phlebovirus test positive [Unknown]
  - Parvovirus B19 test positive [Unknown]
  - Cytomegalovirus infection [Recovered/Resolved]
  - Drug specific antibody [Unknown]
